FAERS Safety Report 5111648-3 (Version None)
Quarter: 2006Q3

REPORT INFORMATION
  Report Type: 
  Country: None (occurrence: None)
  Receive Date: 20060731
  Receipt Date: 20060630
  Transmission Date: 20061208
  Serious: No
  Sender: FDA-Public Use
  Company Number: 2006PV016792

PATIENT
  Age: 52 Year
  Sex: Female
  Weight: 117.028 kg

DRUGS (4)
  1. BYETTA [Suspect]
     Indication: DIABETES MELLITUS NON-INSULIN-DEPENDENT
     Dosage: SEE IMAGE
     Route: 058
     Dates: start: 20060429, end: 20060621
  2. BYETTA [Suspect]
     Indication: DIABETES MELLITUS NON-INSULIN-DEPENDENT
     Dosage: SEE IMAGE
     Route: 058
     Dates: start: 20060622, end: 20060623
  3. COZAAR [Suspect]
  4. ALLEGRA [Concomitant]

REACTIONS (4)
  - EYE PRURITUS [None]
  - PARAESTHESIA [None]
  - RASH [None]
  - URTICARIA [None]
